FAERS Safety Report 5011245-4 (Version None)
Quarter: 2006Q2

REPORT INFORMATION
  Report Type: 
  Country: None (occurrence: None)
  Receive Date: 20060523
  Receipt Date: 20060523
  Transmission Date: 20061013
  Serious: No
  Sender: FDA-Public Use
  Company Number: None

PATIENT
  Age: 74 Year
  Sex: Female
  Weight: 56.6996 kg

DRUGS (1)
  1. LEVAQUIN [Suspect]
     Indication: URINARY TRACT INFECTION
     Dosage: 500 MG   ONE DAILY  PO
     Route: 048
     Dates: start: 20060510, end: 20060520

REACTIONS (4)
  - ARTHRALGIA [None]
  - BACK PAIN [None]
  - MYALGIA [None]
  - PAIN IN EXTREMITY [None]
